FAERS Safety Report 10710666 (Version 1)
Quarter: 2015Q1

REPORT INFORMATION
  Report Type: Spontaneous
  Country: US (occurrence: None)
  Receive Date: 20150112
  Receipt Date: 20150112
  Transmission Date: 20150721
  Serious: Yes (Hospitalization)
  Sender: FDA-Public Use
  Company Number: HA14-471-AE

PATIENT
  Age: 71 Year
  Sex: Male
  Weight: 108.41 kg

DRUGS (8)
  1. IBUPROFEN. [Suspect]
     Active Substance: IBUPROFEN
     Indication: ARTHRITIS
     Dosage: 1 TABLET
     Route: 048
  2. TAMSULOSIN [Concomitant]
     Active Substance: TAMSULOSIN
  3. NITROGLYCERIN. [Concomitant]
     Active Substance: NITROGLYCERIN
  4. COUMADIN [Concomitant]
     Active Substance: WARFARIN SODIUM
  5. TYLENOL (EQUATE TYLENOL) [Concomitant]
  6. CELEBREX [Concomitant]
     Active Substance: CELECOXIB
  7. OMEPRAZOLE. [Concomitant]
     Active Substance: OMEPRAZOLE
  8. PRAVASTATIN [Concomitant]
     Active Substance: PRAVASTATIN\PRAVASTATIN SODIUM

REACTIONS (7)
  - Arthritis [None]
  - Drug interaction [None]
  - Back disorder [None]
  - Drug ineffective [None]
  - Myocardial infarction [None]
  - Decreased activity [None]
  - Abasia [None]

NARRATIVE: CASE EVENT DATE: 2011
